FAERS Safety Report 10945145 (Version 1)
Quarter: 2015Q1

REPORT INFORMATION
  Report Type: Spontaneous
  Country: US (occurrence: US)
  Receive Date: 20150323
  Receipt Date: 20150323
  Transmission Date: 20150721
  Serious: No
  Sender: FDA-Public Use
  Company Number: US-TEVA-547692USA

PATIENT
  Sex: Female

DRUGS (1)
  1. COPAXONE [Suspect]
     Active Substance: GLATIRAMER ACETATE

REACTIONS (6)
  - Formication [Unknown]
  - Injection site inflammation [Unknown]
  - Injection site erythema [Unknown]
  - Product quality issue [Unknown]
  - Injection site pain [Recovered/Resolved]
  - Injection site pain [Unknown]
